FAERS Safety Report 22209076 (Version 1)
Quarter: 2023Q2

REPORT INFORMATION
  Report Type: Report from Study
  Country: US (occurrence: US)
  Receive Date: 20230413
  Receipt Date: 20230413
  Transmission Date: 20230722
  Serious: Yes (Hospitalization)
  Sender: FDA-Public Use
  Company Number: US-AGIOS-2304US03311

PATIENT
  Sex: Male

DRUGS (1)
  1. MITAPIVAT [Suspect]
     Active Substance: MITAPIVAT
     Indication: Haemolytic anaemia enzyme specific
     Dosage: 5 MILLIGRAM, BID
     Route: 048
     Dates: start: 20230112

REACTIONS (2)
  - Muscle strain [Unknown]
  - Diarrhoea [Unknown]
